FAERS Safety Report 9724571 (Version 3)
Quarter: 2015Q2

REPORT INFORMATION
  Report Type: Spontaneous
  Country: US (occurrence: US)
  Receive Date: 20131202
  Receipt Date: 20150424
  Transmission Date: 20150821
  Serious: Yes (Other)
  Sender: FDA-Public Use
  Company Number: US-AMGEN-USASP2013081254

PATIENT
  Age: 52 Year
  Sex: Female

DRUGS (2)
  1. ENBREL [Suspect]
     Active Substance: ETANERCEPT
     Indication: RHEUMATOID ARTHRITIS
     Dosage: 50 MG, QWK
     Route: 065
  2. ENBREL [Suspect]
     Active Substance: ETANERCEPT
     Dosage: UNK
     Route: 065

REACTIONS (23)
  - Neuralgia [Not Recovered/Not Resolved]
  - Feeling abnormal [Not Recovered/Not Resolved]
  - Injection site pain [Not Recovered/Not Resolved]
  - Tooth infection [Not Recovered/Not Resolved]
  - Pneumonia [Recovered/Resolved]
  - Dry eye [Recovered/Resolved]
  - Diarrhoea [Recovered/Resolved]
  - Rash papular [Not Recovered/Not Resolved]
  - Fibromyalgia [Not Recovered/Not Resolved]
  - Inflammatory marker increased [Not Recovered/Not Resolved]
  - Localised infection [Recovered/Resolved]
  - Exostosis [Recovered/Resolved]
  - Dry mouth [Not Recovered/Not Resolved]
  - Device failure [Not Recovered/Not Resolved]
  - Joint lock [Not Recovered/Not Resolved]
  - Fatigue [Not Recovered/Not Resolved]
  - Immune system disorder [Not Recovered/Not Resolved]
  - Rheumatoid arthritis [Not Recovered/Not Resolved]
  - Tendon rupture [Recovered/Resolved]
  - Arthritis infective [Recovered/Resolved]
  - Joint swelling [Recovered/Resolved]
  - Abdominal pain [Recovered/Resolved]
  - Swelling [Not Recovered/Not Resolved]

NARRATIVE: CASE EVENT DATE: 201211
